FAERS Safety Report 7920928-5 (Version None)
Quarter: 2011Q4

REPORT INFORMATION
  Report Type: 
  Country: None (occurrence: None)
  Receive Date: 20111117
  Receipt Date: 20111109
  Transmission Date: 20120403
  Serious: Yes (Death, Hospitalization)
  Sender: FDA-Public Use
  Company Number: US-ACTELION-A-NJ2011-52517

PATIENT

DRUGS (2)
  1. TRACLEER [Suspect]
     Indication: PULMONARY HYPERTENSION
     Dosage: UNK
     Route: 048
     Dates: start: 20080617, end: 20110101
  2. ADCIRCA [Concomitant]

REACTIONS (7)
  - SYNCOPE [None]
  - PULMONARY HYPERTENSION [None]
  - COUGH [None]
  - FATIGUE [None]
  - DEATH [None]
  - DYSPNOEA [None]
  - ASTHENIA [None]
